FAERS Safety Report 5486780-5 (Version None)
Quarter: 2007Q4

REPORT INFORMATION
  Report Type: 
  Country: None (occurrence: None)
  Receive Date: 20071016
  Receipt Date: 20071004
  Transmission Date: 20080405
  Serious: Yes (Hospitalization)
  Sender: FDA-Public Use
  Company Number: B0490525A

PATIENT
  Age: 48 Year
  Sex: Female

DRUGS (2)
  1. LAPATINIB [Suspect]
     Dosage: 1250MG PER DAY
     Route: 048
     Dates: start: 20070827
  2. CAPECITABINE [Suspect]
     Route: 048
     Dates: start: 20070827, end: 20070925

REACTIONS (2)
  - HEPATIC ENZYME INCREASED [None]
  - MALAISE [None]
